FAERS Safety Report 20201752 (Version 1)
Quarter: 2021Q4

REPORT INFORMATION
  Report Type: Spontaneous
  Country: GB (occurrence: GB)
  Receive Date: 20211217
  Receipt Date: 20211217
  Transmission Date: 20220303
  Serious: Yes (Disabling, Congenital Anomaly)
  Sender: FDA-Public Use
  Company Number: GB-ABBOTT-07P-167-0359095-00

PATIENT
  Age: 0 Day
  Sex: Female

DRUGS (4)
  1. EPILIM [Suspect]
     Active Substance: VALPROATE SODIUM
     Indication: Maternal exposure timing unspecified
     Route: 064
  2. EPILIM [Suspect]
     Active Substance: VALPROATE SODIUM
     Route: 064
     Dates: start: 19970707
  3. EPILIM [Suspect]
     Active Substance: VALPROATE SODIUM
     Route: 064
  4. EPILIM [Suspect]
     Active Substance: VALPROATE SODIUM
     Route: 064
     Dates: start: 19971201

REACTIONS (31)
  - Foetal anticonvulsant syndrome [None]
  - Congenital hydrocephalus [None]
  - Gastrooesophageal reflux disease [None]
  - Developmental delay [None]
  - Petit mal epilepsy [None]
  - Neurogenic bladder [None]
  - Hypotonia [None]
  - Precocious puberty [None]
  - Learning disorder [None]
  - Speech disorder developmental [None]
  - Meningomyelocele [None]
  - Dysmorphism [None]
  - Strabismus [None]
  - Dysmorphism [None]
  - Congenital nose malformation [None]
  - Dysmorphism [None]
  - Congenital nose malformation [None]
  - Lip disorder [None]
  - Lip disorder [None]
  - Congenital jaw malformation [None]
  - Congenital hand malformation [None]
  - Urinary tract infection [None]
  - Developmental delay [None]
  - Developmental delay [None]
  - Anal incontinence [None]
  - Urinary incontinence [None]
  - Foetal exposure during pregnancy [None]
  - Gait inability [Unknown]
  - Aphasia [Unknown]
  - Loss of personal independence in daily activities [Unknown]
  - Life expectancy shortened [Unknown]

NARRATIVE: CASE EVENT DATE: 19980302
